FAERS Safety Report 4915907-6 (Version None)
Quarter: 2006Q1

REPORT INFORMATION
  Report Type: 
  Country: None (occurrence: None)
  Receive Date: 20060214
  Receipt Date: 20060201
  Transmission Date: 20060701
  Serious: Yes (Other)
  Sender: FDA-Public Use
  Company Number: 2006006178

PATIENT
  Age: 32 Year
  Sex: Male

DRUGS (2)
  1. ZITHROMAX [Suspect]
     Indication: ILL-DEFINED DISORDER
     Dates: start: 20051125
  2. CLOZAPINE [Suspect]
     Indication: ILL-DEFINED DISORDER
     Dosage: 100 MG, ORAL
     Route: 048
     Dates: start: 20050204

REACTIONS (2)
  - NEUTROPHIL COUNT DECREASED [None]
  - WHITE BLOOD CELL COUNT DECREASED [None]
